FAERS Safety Report 8537424-7 (Version None)
Quarter: 2012Q3

REPORT INFORMATION
  Report Type: 
  Country: None (occurrence: None)
  Receive Date: 20120712
  Receipt Date: 20120628
  Transmission Date: 20120928
  Serious: Yes (Life-Threatening)
  Sender: FDA-Public Use
  Company Number: MC201200281

PATIENT
  Age: 73 Year
  Sex: Male

DRUGS (3)
  1. ANGIOMAX [Suspect]
     Indication: CORONARY ANGIOPLASTY
     Dosage: 0.7 MG/KG, INTRAVENOUS
     Route: 042
     Dates: start: 20120413, end: 20120413
  2. CLOPIDOGREL [Suspect]
     Indication: CORONARY ANGIOPLASTY
     Dosage: UNK
     Dates: end: 20120413
  3. ASPIRIN [Suspect]
     Indication: CORONARY ANGIOPLASTY
     Dosage: 100 MG
     Dates: end: 20120413

REACTIONS (2)
  - SUBDURAL HAEMATOMA [None]
  - HEMIPARESIS [None]
